FAERS Safety Report 16071082 (Version 1)
Quarter: 2019Q1

REPORT INFORMATION
  Report Type: Spontaneous
  Country: US (occurrence: US)
  Receive Date: 20190314
  Receipt Date: 20190314
  Transmission Date: 20190418
  Serious: No
  Sender: FDA-Public Use
  Company Number: US-PFIZER INC-2018148532

PATIENT
  Age: 57 Year
  Sex: Male
  Weight: 122.4 kg

DRUGS (1)
  1. LYRICA [Suspect]
     Active Substance: PREGABALIN
     Indication: NEUROPATHY PERIPHERAL
     Dosage: 225 MG, 3X/DAY
     Route: 048
     Dates: start: 20181113

REACTIONS (2)
  - Prescribed overdose [Unknown]
  - Hypoaesthesia [Unknown]
